FAERS Safety Report 5405946-3 (Version None)
Quarter: 2007Q3

REPORT INFORMATION
  Report Type: 
  Country: None (occurrence: None)
  Receive Date: 20070806
  Receipt Date: 20070729
  Transmission Date: 20080115
  Serious: Yes (Hospitalization, Other)
  Sender: FDA-Public Use
  Company Number: US-AMGEN-US236271

PATIENT
  Age: 77 Year
  Sex: Female

DRUGS (1)
  1. SENSIPAR [Suspect]
     Indication: HYPERPARATHYROIDISM PRIMARY

REACTIONS (2)
  - ABDOMINAL STRANGULATED HERNIA [None]
  - RESPIRATORY DISTRESS [None]
